FAERS Safety Report 9927849 (Version 2)
Quarter: 2014Q1

REPORT INFORMATION
  Report Type: Report from Study
  Country: US (occurrence: US)
  Receive Date: 20140227
  Receipt Date: 20140227
  Transmission Date: 20141002
  Serious: Yes (Other)
  Sender: FDA-Public Use
  Company Number: US-ROCHE-1338737

PATIENT
  Sex: Female

DRUGS (4)
  1. LUCENTIS [Suspect]
     Indication: DIABETIC RETINAL OEDEMA
     Route: 065
  2. METFORMIN [Concomitant]
     Indication: DIABETES MELLITUS
  3. NESINA [Concomitant]
  4. GABAPENTIN [Concomitant]

REACTIONS (3)
  - Laser therapy [Unknown]
  - Visual acuity reduced [Unknown]
  - Periorbital contusion [Unknown]
